FAERS Safety Report 16731369 (Version 1)
Quarter: 2019Q3

REPORT INFORMATION
  Report Type: Spontaneous
  Country: US (occurrence: US)
  Receive Date: 20190822
  Receipt Date: 20190822
  Transmission Date: 20191005
  Serious: Yes (Hospitalization)
  Sender: FDA-Public Use
  Company Number: US-AMERICAN REGENT INC-20191389

PATIENT
  Age: 57 Year
  Sex: Female

DRUGS (3)
  1. COUMADIN [Concomitant]
     Active Substance: WARFARIN SODIUM
     Indication: DEEP VEIN THROMBOSIS
     Dosage: UNKNOWN
     Route: 065
  2. VENOFER [Suspect]
     Active Substance: IRON SUCROSE
     Dosage: 20 MG  1 HOUR
     Route: 042
     Dates: start: 20190508, end: 20190508
  3. VENOFER [Suspect]
     Active Substance: IRON SUCROSE
     Indication: PRODUCT USED FOR UNKNOWN INDICATION
     Dosage: 400 MG 1 DAYS
     Route: 042
     Dates: start: 20190429, end: 20190429

REACTIONS (14)
  - Nausea [Unknown]
  - Diarrhoea [Recovered/Resolved]
  - Chest pain [Unknown]
  - Blood pressure abnormal [Unknown]
  - Anaphylactic reaction [Unknown]
  - Dyspnoea [Unknown]
  - Underdose [Unknown]
  - Vomiting [Unknown]
  - Anal incontinence [Unknown]
  - Heart rate abnormal [Unknown]
  - Pancreatitis acute [Unknown]
  - Hypotension [Unknown]
  - Asthenia [Unknown]
  - Wheezing [Unknown]

NARRATIVE: CASE EVENT DATE: 20190429
